FAERS Safety Report 25323998 (Version 1)
Quarter: 2025Q2

REPORT INFORMATION
  Report Type: Spontaneous
  Country: US (occurrence: US)
  Receive Date: 20250516
  Receipt Date: 20250516
  Transmission Date: 20250716
  Serious: No
  Sender: EISAI
  Company Number: US-Eisai-EC-2025-188392

PATIENT
  Age: 77 Year
  Sex: Male

DRUGS (1)
  1. LEQEMBI [Suspect]
     Active Substance: LECANEMAB-IRMB
     Indication: Product used for unknown indication
     Dates: start: 2024

REACTIONS (4)
  - Skin reaction [Unknown]
  - Hypertensive urgency [Recovered/Resolved]
  - Paraesthesia [Unknown]
  - Blood pressure increased [Unknown]

NARRATIVE: CASE EVENT DATE: 20240101
